FAERS Safety Report 5868171-8 (Version None)
Quarter: 2008Q3

REPORT INFORMATION
  Report Type: 
  Country: None (occurrence: None)
  Receive Date: 20080902
  Receipt Date: 20080825
  Transmission Date: 20090109
  Serious: Yes (Hospitalization)
  Sender: FDA-Public Use
  Company Number: FR-ASTRAZENECA-2008CG01256

PATIENT
  Age: 19119 Day
  Sex: Female

DRUGS (5)
  1. CRESTOR [Suspect]
     Indication: HYPERCHOLESTEROLAEMIA
     Route: 048
     Dates: start: 20080429, end: 20080505
  2. BYETTA [Suspect]
     Indication: TYPE 2 DIABETES MELLITUS
     Route: 058
     Dates: start: 20080429, end: 20080504
  3. MOTILIUM [Concomitant]
     Route: 048
     Dates: start: 20080501
  4. GLUCOPHAGE [Concomitant]
     Indication: TYPE 2 DIABETES MELLITUS
  5. AMARYL [Concomitant]
     Indication: TYPE 2 DIABETES MELLITUS

REACTIONS (2)
  - METABOLIC ACIDOSIS [None]
  - RENAL FAILURE ACUTE [None]
